FAERS Safety Report 8071599-1 (Version None)
Quarter: 2012Q1

REPORT INFORMATION
  Report Type: 
  Country: None (occurrence: None)
  Receive Date: 20120125
  Receipt Date: 20120118
  Transmission Date: 20120608
  Serious: Yes (Other)
  Sender: FDA-Public Use
  Company Number: BR-PFIZER INC-2012014204

PATIENT
  Age: 65 Year
  Sex: Male
  Weight: 85 kg

DRUGS (3)
  1. ENALAPRIL [Suspect]
     Indication: HYPERTENSION
  2. SIMVASTATIN [Suspect]
  3. XALATAN [Suspect]
     Indication: GLAUCOMA
     Route: 047

REACTIONS (1)
  - INTRAOCULAR PRESSURE INCREASED [None]
